FAERS Safety Report 7894232-8 (Version None)
Quarter: 2011Q4

REPORT INFORMATION
  Report Type: 
  Country: None (occurrence: None)
  Receive Date: 20111104
  Receipt Date: 20111025
  Transmission Date: 20120403
  Serious: Yes (Hospitalization, Other)
  Sender: FDA-Public Use
  Company Number: US-ABBOTT-11P-163-0867754-00

PATIENT
  Sex: Male

DRUGS (2)
  1. HUMIRA [Suspect]
     Indication: CROHN'S DISEASE
     Dates: start: 20090709, end: 20091110
  2. REMICADE [Concomitant]
     Indication: CROHN'S DISEASE
     Dates: start: 20061201, end: 20090421

REACTIONS (13)
  - DYSPNOEA [None]
  - GAIT DISTURBANCE [None]
  - EMOTIONAL DISORDER [None]
  - PNEUMONIA PRIMARY ATYPICAL [None]
  - SARCOIDOSIS [None]
  - MOBILITY DECREASED [None]
  - ASTHENIA [None]
  - ABDOMINAL DISTENSION [None]
  - DEPRESSION [None]
  - ANGER [None]
  - FEAR [None]
  - SELF ESTEEM DECREASED [None]
  - ECONOMIC PROBLEM [None]
